FAERS Safety Report 4412718-5 (Version None)
Quarter: 2004Q2

REPORT INFORMATION
  Report Type: 
  Country: None (occurrence: None)
  Receive Date: 20040630
  Receipt Date: 20040517
  Transmission Date: 20050107
  Serious: No
  Sender: FDA-Public Use
  Company Number: 04P-163-0261057-00

PATIENT
  Age: 33 Year
  Sex: Female
  Weight: 113.3993 kg

DRUGS (13)
  1. HUMIRA [Suspect]
     Indication: RHEUMATOID ARTHRITIS
     Dosage: 40 MG, 1 IN 2 WK, SUBCUTANEOUS
     Route: 058
     Dates: start: 20040403, end: 20040513
  2. LISINOPRIL [Concomitant]
  3. IRON [Concomitant]
  4. CYCLOBENZAPRINE HCL [Concomitant]
  5. METOPROLOL [Concomitant]
  6. CALCIUM CARBONATE [Concomitant]
  7. MULTI-VITAMINS [Concomitant]
  8. ASPIRIN [Concomitant]
  9. ALBUTEROL SULFATE [Concomitant]
  10. OVULEN [Concomitant]
  11. BIRTH CONTROL PILL [Concomitant]
  12. MORPHINE SULFATE [Concomitant]
  13. OXYCODONE HCL [Concomitant]

REACTIONS (2)
  - NASOPHARYNGITIS [None]
  - OEDEMA PERIPHERAL [None]
